FAERS Safety Report 8289119-5 (Version None)
Quarter: 2012Q2

REPORT INFORMATION
  Report Type: 
  Country: None (occurrence: None)
  Receive Date: 20120412
  Receipt Date: 20120402
  Transmission Date: 20120825
  Serious: Yes (Death, Hospitalization, Other)
  Sender: FDA-Public Use
  Company Number: 2012MA004330

PATIENT
  Sex: Female

DRUGS (1)
  1. DIGOXIN [Suspect]
     Indication: PRODUCT USED FOR UNKNOWN INDICATION
     Dosage: 0.125 MG, PO
     Route: 048
     Dates: start: 20080306

REACTIONS (10)
  - ECONOMIC PROBLEM [None]
  - SURGERY [None]
  - CHEST PAIN [None]
  - MALAISE [None]
  - ATRIAL FIBRILLATION [None]
  - FAMILY STRESS [None]
  - THIRST [None]
  - BUNDLE BRANCH BLOCK LEFT [None]
  - DYSPNOEA [None]
  - MULTIPLE INJURIES [None]
